FAERS Safety Report 7200197-4 (Version None)
Quarter: 2010Q4

REPORT INFORMATION
  Report Type: 
  Country: None (occurrence: None)
  Receive Date: 20101228
  Receipt Date: 20101217
  Transmission Date: 20110411
  Serious: Yes (Hospitalization)
  Sender: FDA-Public Use
  Company Number: FR-PFIZER INC-2010167705

PATIENT
  Age: 48 Year
  Sex: Female

DRUGS (10)
  1. EFFEXOR XR [Suspect]
     Dosage: 75 MG, 2X/DAY
     Route: 048
     Dates: start: 20100802, end: 20100917
  2. LOXAPAC [Suspect]
     Dosage: UNK
     Route: 048
     Dates: start: 20100810, end: 20100817
  3. LEPTICUR [Suspect]
     Dosage: 10 MG, 1X/DAY
     Route: 048
     Dates: start: 20100817, end: 20100817
  4. LYSANXIA [Concomitant]
     Dosage: 10 MG, 3X/DAY
     Dates: start: 20100731, end: 20100901
  5. IMOVANE [Concomitant]
     Dosage: 7.5 MG, 1X/DAY
     Route: 048
     Dates: start: 20100731, end: 20100901
  6. SERESTA [Concomitant]
     Dosage: 10 MG, 3X/DAY
     Route: 048
     Dates: start: 20100801
  7. BROMAZEPAM [Concomitant]
     Dosage: UNK
  8. ANAFRANIL [Concomitant]
     Dosage: 25 MG, 1X/DAY
     Route: 048
     Dates: start: 20100906, end: 20100917
  9. ANAFRANIL [Concomitant]
     Dosage: 75 MG, 1X/DAY
     Route: 048
     Dates: start: 20100917, end: 20100922
  10. ANAFRANIL [Concomitant]
     Dosage: 75 MG, 1X/DAY
     Dates: start: 20100917, end: 20100922

REACTIONS (5)
  - INSOMNIA [None]
  - PARKINSONISM [None]
  - SUICIDE ATTEMPT [None]
  - URINARY RETENTION [None]
  - URINARY TRACT INFECTION [None]
